FAERS Safety Report 14877929 (Version 5)
Quarter: 2018Q2

REPORT INFORMATION
  Report Type: Report from Study
  Country: CN (occurrence: CN)
  Receive Date: 20180510
  Receipt Date: 20180625
  Transmission Date: 20180711
  Serious: Yes (Hospitalization)
  Sender: FDA-Public Use
  Company Number: CN-ASTRAZENECA-2018SE51111

PATIENT
  Age: 58 Year
  Sex: Female

DRUGS (2)
  1. BYETTA [Suspect]
     Active Substance: EXENATIDE
     Indication: DIABETES MELLITUS
     Route: 058
     Dates: start: 201702
  2. INSULIN [Concomitant]
     Active Substance: INSULIN NOS
     Dates: end: 201702

REACTIONS (15)
  - Glycosylated haemoglobin increased [Unknown]
  - Hyperhidrosis [Not Recovered/Not Resolved]
  - Periarthritis [Unknown]
  - Blood glucose increased [Not Recovered/Not Resolved]
  - Drug ineffective [Unknown]
  - Alanine aminotransferase increased [Unknown]
  - Insomnia [Not Recovered/Not Resolved]
  - Discomfort [Unknown]
  - Urinary tract infection [Recovered/Resolved]
  - Hypoglycaemia [Unknown]
  - Hypertension [Unknown]
  - Aspartate aminotransferase increased [Unknown]
  - Hyperlipidaemia [Unknown]
  - Hyperglycaemia [Unknown]
  - Abdominal discomfort [Recovered/Resolved]
